FAERS Safety Report 17027262 (Version 1)
Quarter: 2019Q4

REPORT INFORMATION
  Report Type: Report from Study
  Country: BR (occurrence: BR)
  Receive Date: 20191113
  Receipt Date: 20191113
  Transmission Date: 20200122
  Serious: Yes (Hospitalization)
  Sender: FDA-Public Use
  Company Number: BR-UCBSA-2019039555

PATIENT
  Age: 60 Year
  Sex: Female
  Weight: 89 kg

DRUGS (1)
  1. CERTOLIZUMAB PEGOL RA [Suspect]
     Active Substance: CERTOLIZUMAB PEGOL
     Indication: RHEUMATOID ARTHRITIS
     Dosage: 400 MILLIGRAM, EV 4 WEEKS
     Route: 058

REACTIONS (9)
  - Finger deformity [Not Recovered/Not Resolved]
  - Movement disorder [Not Recovered/Not Resolved]
  - Limb mass [Not Recovered/Not Resolved]
  - Joint swelling [Recovering/Resolving]
  - Tooth fracture [Recovering/Resolving]
  - Hand deformity [Not Recovered/Not Resolved]
  - Inflammation [Not Recovered/Not Resolved]
  - Peripheral swelling [Recovering/Resolving]
  - Drug ineffective [Unknown]

NARRATIVE: CASE EVENT DATE: 20190716
